FAERS Safety Report 7547957-8 (Version None)
Quarter: 2011Q2

REPORT INFORMATION
  Report Type: 
  Country: None (occurrence: None)
  Receive Date: 20110615
  Receipt Date: 20110607
  Transmission Date: 20111010
  Serious: Yes (Hospitalization, Other)
  Sender: FDA-Public Use
  Company Number: US-BIOGENIDEC-2011BI021138

PATIENT
  Age: 48 Year
  Sex: Female

DRUGS (2)
  1. AVONEX [Suspect]
     Indication: MULTIPLE SCLEROSIS
     Route: 030
  2. AVONEX [Suspect]
     Route: 030
     Dates: start: 19980101

REACTIONS (10)
  - CONVULSION [None]
  - CARPAL TUNNEL SYNDROME [None]
  - SYNOVIAL CYST [None]
  - OPTIC NEURITIS [None]
  - MULTIPLE SCLEROSIS [None]
  - MULTIPLE SCLEROSIS RELAPSE [None]
  - TRIGGER FINGER [None]
  - VISION BLURRED [None]
  - SLEEP DISORDER [None]
  - DRY EYE [None]
